FAERS Safety Report 5415218-9 (Version None)
Quarter: 2007Q3

REPORT INFORMATION
  Report Type: 
  Country: None (occurrence: None)
  Receive Date: 20070813
  Receipt Date: 20070711
  Transmission Date: 20080115
  Serious: Yes (Other)
  Sender: FDA-Public Use
  Company Number: 2007RR-08664

PATIENT
  Sex: Female

DRUGS (2)
  1. ZIDOVUDINE [Suspect]
     Dosage: ORAL
     Route: 048
  2. DIFLUCAN [Suspect]
     Dosage: ORAL
     Route: 048
     Dates: start: 20070501

REACTIONS (3)
  - DRUG INTERACTION [None]
  - ILL-DEFINED DISORDER [None]
  - VOMITING [None]
